FAERS Safety Report 25361690 (Version 6)
Quarter: 2025Q3

REPORT INFORMATION
  Report Type: Spontaneous
  Country: EU (occurrence: EU)
  Receive Date: 20250527
  Receipt Date: 20250920
  Transmission Date: 20251021
  Serious: Yes (Death, Life-Threatening, Hospitalization, Other)
  Sender: NOVARTIS
  Company Number: EU-BIOVITRUM-2025-BE-007070

PATIENT
  Age: 6 Year
  Sex: Male
  Weight: 20 kg

DRUGS (24)
  1. CYCLOSPORINE [Suspect]
     Active Substance: CYCLOSPORINE
     Indication: Haemophagocytic lymphohistiocytosis
     Route: 065
  2. CYCLOSPORINE [Suspect]
     Active Substance: CYCLOSPORINE
     Dosage: 1 MG/KG (2X/DAY)
     Route: 048
     Dates: start: 202503
  3. ETOPOSIDE [Suspect]
     Active Substance: ETOPOSIDE
     Indication: Haemophagocytic lymphohistiocytosis
     Route: 042
     Dates: start: 20250507, end: 20250507
  4. METHYLPREDNISOLONE [Suspect]
     Active Substance: METHYLPREDNISOLONE
     Indication: Haemophagocytic lymphohistiocytosis
     Route: 065
     Dates: start: 20250310
  5. METHYLPREDNISOLONE [Suspect]
     Active Substance: METHYLPREDNISOLONE
     Dosage: 10 MG/KG, BID ((2X/DAY))
     Route: 042
     Dates: start: 20250507, end: 20250511
  6. METHYLPREDNISOLONE [Suspect]
     Active Substance: METHYLPREDNISOLONE
     Dosage: 1 MG/KG, BID (2X/DAY)
     Route: 042
     Dates: start: 20250512
  7. METHYLPREDNISOLONE [Suspect]
     Active Substance: METHYLPREDNISOLONE
     Route: 065
  8. GAMIFANT [Suspect]
     Active Substance: EMAPALUMAB-LZSG
     Indication: Haemophagocytic lymphohistiocytosis
     Route: 042
     Dates: start: 20250509
  9. GAMIFANT [Suspect]
     Active Substance: EMAPALUMAB-LZSG
     Indication: Lysinuric protein intolerance
     Route: 042
     Dates: start: 20250520
  10. GAMIFANT [Suspect]
     Active Substance: EMAPALUMAB-LZSG
     Route: 042
  11. GAMIFANT [Suspect]
     Active Substance: EMAPALUMAB-LZSG
     Route: 042
     Dates: end: 20250516
  12. GAMIFANT [Suspect]
     Active Substance: EMAPALUMAB-LZSG
     Dosage: 5 MG/KG TWICE A WEEK
     Route: 042
     Dates: start: 20250603
  13. GAMIFANT [Suspect]
     Active Substance: EMAPALUMAB-LZSG
     Dosage: 6 MG/KG TWICE A WEEK
     Route: 042
     Dates: start: 20250613
  14. GAMIFANT [Suspect]
     Active Substance: EMAPALUMAB-LZSG
     Route: 042
  15. KINERET [Suspect]
     Active Substance: ANAKINRA
     Indication: Haemophagocytic lymphohistiocytosis
     Dosage: 2 MG/KG, QD, 1X/DAY
     Route: 058
     Dates: start: 20250414, end: 20250516
  16. KINERET [Suspect]
     Active Substance: ANAKINRA
     Indication: Lysinuric protein intolerance
     Dosage: 4 MG/KG, QD (INCREASED TO 4 MG/KG/DAY)
     Route: 065
  17. KINERET [Suspect]
     Active Substance: ANAKINRA
     Route: 065
  18. FUROSEMIDE [Concomitant]
     Active Substance: FUROSEMIDE
     Indication: Prophylaxis
     Route: 065
  19. LISINOPRIL [Concomitant]
     Active Substance: LISINOPRIL
     Indication: Prophylaxis
     Route: 065
  20. SPIRONOLACTONE [Concomitant]
     Active Substance: SPIRONOLACTONE
     Indication: Prophylaxis
     Route: 065
  21. DIAZEPAM [Concomitant]
     Active Substance: DIAZEPAM
     Indication: Product used for unknown indication
     Route: 065
  22. ATENOLOL [Concomitant]
     Active Substance: ATENOLOL
     Indication: Prophylaxis
     Route: 065
  23. AMLODIPINE [Concomitant]
     Active Substance: AMLODIPINE BESYLATE
     Indication: Prophylaxis
     Route: 065
  24. CITRULLINE [Concomitant]
     Active Substance: CITRULLINE
     Indication: Metabolic disorder
     Route: 065

REACTIONS (14)
  - Haemophagocytic lymphohistiocytosis [Fatal]
  - Condition aggravated [Fatal]
  - Alveolar proteinosis [Fatal]
  - Cytomegalovirus test positive [Fatal]
  - Enterobacter infection [Fatal]
  - Respiratory failure [Fatal]
  - Pneumonia cytomegaloviral [Unknown]
  - Escherichia sepsis [Recovered/Resolved]
  - Pseudo Cushing^s syndrome [Unknown]
  - Myopathy [Unknown]
  - Colitis [Unknown]
  - Streptococcal sepsis [Unknown]
  - Platelet count decreased [Unknown]
  - Serum ferritin increased [Recovering/Resolving]

NARRATIVE: CASE EVENT DATE: 20250310
